FAERS Safety Report 19433891 (Version 1)
Quarter: 2021Q2

REPORT INFORMATION
  Report Type: Spontaneous
  Country: US (occurrence: US)
  Receive Date: 20210617
  Receipt Date: 20210617
  Transmission Date: 20210717
  Serious: No
  Sender: FDA-Public Use
  Company Number: US-ROCHE-2597422

PATIENT
  Sex: Male
  Weight: 65.7 kg

DRUGS (8)
  1. ACTEMRA [Suspect]
     Active Substance: TOCILIZUMAB
     Indication: CYTOKINE RELEASE SYNDROME
  2. ASCORBIC ACID. [Concomitant]
     Active Substance: ASCORBIC ACID
     Dosage: 1500MG IVPB Q12 X 10 DOSES (4/13 ? 4/18)
     Dates: start: 20200413, end: 20200418
  3. ZINC SULFATE. [Concomitant]
     Active Substance: ZINC SULFATE
     Dosage: 5 DOSES
     Route: 048
     Dates: start: 20200413, end: 20200417
  4. AZITHROMYCIN ANHYDROUS. [Concomitant]
     Active Substance: AZITHROMYCIN ANHYDROUS
     Dosage: 500MG IVPB X 1 DOSE ON 4/13
     Dates: start: 20200413
  5. HYDROXYCHLOROQUINE [Concomitant]
     Active Substance: HYDROXYCHLOROQUINE
     Dosage: PO Q12 X 2 DOSES, THEN 200MG PO Q12 X 6 DOSES
     Route: 048
     Dates: start: 20200415, end: 20200418
  6. CEFTRIAXONE. [Concomitant]
     Active Substance: CEFTRIAXONE
     Dosage: IVPB DAILY X 3 DOSES (4/13?4/15)
     Dates: start: 20200413, end: 20200415
  7. ACTEMRA [Suspect]
     Active Substance: TOCILIZUMAB
     Indication: COVID-19 PNEUMONIA
     Route: 042
     Dates: start: 20200416, end: 20200416
  8. ASCORBIC ACID. [Concomitant]
     Active Substance: ASCORBIC ACID
     Dosage: 1500MG PO TID X 20 DOSES (4/21 ? 4/27)
     Route: 048
     Dates: start: 20200421, end: 20200427

REACTIONS (3)
  - No adverse event [Unknown]
  - Off label use [Unknown]
  - Intentional product use issue [Unknown]
